FAERS Safety Report 16954405 (Version 3)
Quarter: 2020Q1

REPORT INFORMATION
  Report Type: Spontaneous
  Country: US (occurrence: US)
  Receive Date: 20191023
  Receipt Date: 20200127
  Transmission Date: 20200409
  Serious: Yes (Death, Life-Threatening, Other)
  Sender: FDA-Public Use
  Company Number: US-GILEAD-2019-0434394

PATIENT
  Age: 66 Year
  Sex: Female
  Weight: 72 kg

DRUGS (37)
  1. GADOTERIDOL [Concomitant]
     Active Substance: GADOTERIDOL
  2. SODIUM BICARBONATE. [Concomitant]
     Active Substance: SODIUM BICARBONATE
  3. CALCIUM GLUCONATE. [Concomitant]
     Active Substance: CALCIUM GLUCONATE
  4. YESCARTA [Suspect]
     Active Substance: AXICABTAGENE CILOLEUCEL
     Indication: DIFFUSE LARGE B-CELL LYMPHOMA
     Dosage: UNK, ONCE
     Route: 042
     Dates: start: 20191014, end: 20191014
  5. FENTANYL. [Concomitant]
     Active Substance: FENTANYL
  6. VANCOMYCIN [Concomitant]
     Active Substance: VANCOMYCIN
  7. SODIUM PHOSPHATE [Concomitant]
     Active Substance: SODIUM PHOSPHATE
  8. MORPHINE SULFATE. [Concomitant]
     Active Substance: MORPHINE SULFATE
  9. MEROPENEM. [Concomitant]
     Active Substance: MEROPENEM
  10. POSACONAZOLE [Concomitant]
     Active Substance: POSACONAZOLE
  11. MAGNESIUM SULFATE. [Concomitant]
     Active Substance: MAGNESIUM SULFATE
  12. OLANZAPINE. [Concomitant]
     Active Substance: OLANZAPINE
  13. ALBUMIN [Concomitant]
     Active Substance: ALBUMIN HUMAN
  14. ACYCLOVIR [ACICLOVIR] [Concomitant]
     Active Substance: ACYCLOVIR
  15. ACETAMINOPHEN. [Concomitant]
     Active Substance: ACETAMINOPHEN
  16. LEVETIRACETAM. [Concomitant]
     Active Substance: LEVETIRACETAM
  17. LEVOFLOXACIN. [Concomitant]
     Active Substance: LEVOFLOXACIN
  18. POTASSIUM PHOSPHATE [POTASSIUM PHOSPHATE DIBASIC] [Concomitant]
  19. VITAMINS NOS [Concomitant]
     Active Substance: VITAMINS
  20. BACLOFEN. [Concomitant]
     Active Substance: BACLOFEN
  21. FUROSEMIDE. [Concomitant]
     Active Substance: FUROSEMIDE
  22. CEFDINIR. [Concomitant]
     Active Substance: CEFDINIR
  23. COSYNTROPIN. [Concomitant]
     Active Substance: COSYNTROPIN
  24. MIDAZOLAM HYDROCHLORIDE. [Concomitant]
     Active Substance: MIDAZOLAM HYDROCHLORIDE
  25. FAMOTIDINE. [Concomitant]
     Active Substance: FAMOTIDINE
  26. CEFEPIME [Concomitant]
     Active Substance: CEFEPIME HYDROCHLORIDE
  27. POTASSIUM CHLORIDE. [Concomitant]
     Active Substance: POTASSIUM CHLORIDE
  28. DIPHENHYDRAMINE. [Concomitant]
     Active Substance: DIPHENHYDRAMINE
  29. MUPIROCIN. [Concomitant]
     Active Substance: MUPIROCIN
  30. PROPOFOL. [Concomitant]
     Active Substance: PROPOFOL
  31. HYDROMORPHONE [HYDROMORPHONE HYDROCHLORIDE] [Concomitant]
     Active Substance: HYDROMORPHONE HYDROCHLORIDE
  32. PANTOPRAZOLE [Concomitant]
     Active Substance: PANTOPRAZOLE
  33. ALLOPURINOL. [Concomitant]
     Active Substance: ALLOPURINOL
  34. PHENYLEPHRINE [Concomitant]
     Active Substance: PHENYLEPHRINE HYDROCHLORIDE
  35. CEFUROXIME. [Concomitant]
     Active Substance: CEFUROXIME
  36. HYDROCORTISONE. [Concomitant]
     Active Substance: HYDROCORTISONE
  37. PERFLUTREN [Concomitant]
     Active Substance: PERFLUTREN

REACTIONS (14)
  - Cytokine release syndrome [Fatal]
  - Sepsis [Recovered/Resolved]
  - Serum ferritin increased [Not Recovered/Not Resolved]
  - Encephalopathy [Not Recovered/Not Resolved]
  - Hypotension [Not Recovered/Not Resolved]
  - Hyperbilirubinaemia [Not Recovered/Not Resolved]
  - Cardiac failure [Not Recovered/Not Resolved]
  - Pyrexia [Not Recovered/Not Resolved]
  - Renal failure [Not Recovered/Not Resolved]
  - Neurotoxicity [Recovered/Resolved]
  - Neutropenia [Unknown]
  - Blood creatinine increased [Not Recovered/Not Resolved]
  - Death [Fatal]
  - Hypoxia [Not Recovered/Not Resolved]

NARRATIVE: CASE EVENT DATE: 201910
